FAERS Safety Report 15402851 (Version 1)
Quarter: 2018Q3

REPORT INFORMATION
  Report Type: Spontaneous
  Country: US (occurrence: US)
  Receive Date: 20180917
  Receipt Date: 20180917
  Transmission Date: 20181010
  Serious: Yes (Life-Threatening, Disabling, Other)
  Sender: FDA-Public Use
  Company Number: None

PATIENT
  Age: 62 Day
  Sex: Female
  Weight: 111.6 kg

DRUGS (5)
  1. LEVO/LIOTHYR TAB 60MG [Suspect]
     Active Substance: LEVOTHYROXINE\LIOTHYRONINE
     Indication: HYPOTHYROIDISM
     Dosage: ?          QUANTITY:90 TABLET(S);?
     Route: 048
     Dates: start: 20180521, end: 20180823
  2. GLIMEPRIDE [Concomitant]
     Active Substance: GLIMEPIRIDE
  3. LISINOPRIL. [Concomitant]
     Active Substance: LISINOPRIL
  4. FUROSEMIDE. [Concomitant]
     Active Substance: FUROSEMIDE
  5. ARMOUR THYROID [Concomitant]
     Active Substance: THYROID, PORCINE

REACTIONS (9)
  - Dyspnoea [None]
  - Cold sweat [None]
  - Arrhythmia [None]
  - Cardiac failure congestive [None]
  - Palpitations [None]
  - Chest pain [None]
  - Hyperhidrosis [None]
  - Heart rate increased [None]
  - Wheezing [None]

NARRATIVE: CASE EVENT DATE: 20180521
